FAERS Safety Report 8815409 (Version 1)
Quarter: 2012Q4

REPORT INFORMATION
  Report Type: 
  Country: DE (occurrence: DE)
  Receive Date: 20120928
  Receipt Date: 20120928
  Transmission Date: 20130627
  Serious: Yes (Hospitalization)
  Sender: FDA-Public Use
  Company Number: DE-ELI_LILLY_AND_COMPANY-DE201209004310

PATIENT
  Sex: Male

DRUGS (13)
  1. BYDUREON [Suspect]
     Indication: DIABETES MELLITUS
     Dosage: 2 mg, unknown
     Route: 058
  2. OXYCODON [Concomitant]
  3. RAMIPRIL [Concomitant]
  4. SIMVASTATIN [Concomitant]
  5. MOXONIDIN [Concomitant]
  6. BISOPROLOL [Concomitant]
  7. COAPROVEL [Concomitant]
  8. APROVEL [Concomitant]
  9. KALINOR [Concomitant]
  10. MCP [Concomitant]
  11. TORASEMID [Concomitant]
  12. AMLODIPIN                          /00972401/ [Concomitant]
  13. CYMBALTA [Concomitant]

REACTIONS (4)
  - Gastrointestinal disorder [Not Recovered/Not Resolved]
  - Nausea [Not Recovered/Not Resolved]
  - Vomiting [Not Recovered/Not Resolved]
  - Weight increased [Not Recovered/Not Resolved]
